FAERS Safety Report 22313684 (Version 2)
Quarter: 2023Q2

REPORT INFORMATION
  Report Type: Spontaneous
  Country: US (occurrence: US)
  Receive Date: 20230512
  Receipt Date: 20230516
  Transmission Date: 20230721
  Serious: No
  Sender: FDA-Public Use
  Company Number: US-SA-SAC20230510001174

PATIENT
  Age: 54 Year
  Sex: Female
  Weight: 87 kg

DRUGS (5)
  1. DUPIXENT [Suspect]
     Active Substance: DUPILUMAB
     Indication: Dermatitis atopic
     Dosage: 300 MG, QOW
     Route: 058
     Dates: start: 20170530
  2. OPZELURA [Concomitant]
     Active Substance: RUXOLITINIB PHOSPHATE
     Dosage: UNK
  3. METHYLPHENIDATE [Concomitant]
     Active Substance: METHYLPHENIDATE
     Dosage: UNK
  4. PERIACTIN [Concomitant]
     Active Substance: CYPROHEPTADINE HYDROCHLORIDE
     Dosage: UNK
  5. GABAPENTIN [Concomitant]
     Active Substance: GABAPENTIN
     Dosage: UNK

REACTIONS (8)
  - Eczema [Unknown]
  - Dry skin [Unknown]
  - Rash macular [Unknown]
  - Skin fissures [Unknown]
  - Stomatitis [Unknown]
  - Eyelid exfoliation [Unknown]
  - Therapeutic product effect decreased [Unknown]
  - Oral herpes [Unknown]

NARRATIVE: CASE EVENT DATE: 20230101
